FAERS Safety Report 24432449 (Version 1)
Quarter: 2024Q4

REPORT INFORMATION
  Report Type: Report from Study
  Country: CN (occurrence: CN)
  Receive Date: 20241014
  Receipt Date: 20241014
  Transmission Date: 20250114
  Serious: Yes (Death, Hospitalization, Other)
  Sender: JOHNSON AND JOHNSON
  Company Number: CN-JNJFOC-20241027242

PATIENT

DRUGS (4)
  1. REMICADE [Suspect]
     Active Substance: INFLIXIMAB
     Indication: Psoriasis
     Route: 041
  2. STELARA [Suspect]
     Active Substance: USTEKINUMAB
     Indication: Psoriasis
     Route: 058
  3. TREMFYA [Suspect]
     Active Substance: GUSELKUMAB
     Indication: Psoriasis
     Route: 065
  4. TREMFYA [Suspect]
     Active Substance: GUSELKUMAB

REACTIONS (49)
  - Death [Fatal]
  - Hospitalisation [Unknown]
  - Mucocutaneous candidiasis [Unknown]
  - Legionella infection [Unknown]
  - Lymph node tuberculosis [Unknown]
  - Disseminated tuberculosis [Unknown]
  - Pulmonary tuberculosis [Unknown]
  - Pericarditis tuberculous [Unknown]
  - Tuberculosis liver [Unknown]
  - Histoplasmosis disseminated [Unknown]
  - Histoplasmosis [Unknown]
  - Intervertebral discitis [Unknown]
  - Extrapulmonary tuberculosis [Unknown]
  - Mycobacterium marinum infection [Unknown]
  - Cutaneous leishmaniasis [Unknown]
  - Pneumonia legionella [Unknown]
  - Peritoneal tuberculosis [Unknown]
  - Tuberculous pleurisy [Unknown]
  - Herpes zoster disseminated [Unknown]
  - Pneumonia necrotising [Unknown]
  - Mycobacterial infection [Unknown]
  - Flavivirus infection [Unknown]
  - Viral pericarditis [Unknown]
  - Lower respiratory tract infection [Unknown]
  - Infective exacerbation of chronic obstructive airways disease [Unknown]
  - Post procedural pneumonia [Unknown]
  - Peritonsillar abscess [Unknown]
  - Pertussis [Unknown]
  - Staphylococcal osteomyelitis [Unknown]
  - Groin abscess [Unknown]
  - Erysipelas [Unknown]
  - Gastroenteritis norovirus [Unknown]
  - Prostate infection [Unknown]
  - External ear cellulitis [Unknown]
  - Burn infection [Unknown]
  - Latent tuberculosis [Unknown]
  - Soft tissue infection [Unknown]
  - Chikungunya virus infection [Unknown]
  - Carbuncle [Unknown]
  - Skin candida [Unknown]
  - Infestation [Unknown]
  - Tonsillitis bacterial [Unknown]
  - Dengue fever [Unknown]
  - Infected cyst [Unknown]
  - Orchitis [Unknown]
  - Tooth abscess [Unknown]
  - Cellulitis [Unknown]
  - Tinea infection [Unknown]
  - Herpes simplex [Unknown]
